FAERS Safety Report 22108038 (Version 1)
Quarter: 2023Q1

REPORT INFORMATION
  Report Type: Spontaneous
  Country: US (occurrence: US)
  Receive Date: 20230317
  Receipt Date: 20230317
  Transmission Date: 20230417
  Serious: No
  Sender: FDA-Public Use
  Company Number: US-SA-SAC20230314001127

PATIENT
  Sex: Female
  Weight: 90.2 kg

DRUGS (11)
  1. NEXVIAZYME [Suspect]
     Active Substance: AVALGLUCOSIDASE ALFA-NGPT
     Indication: Glycogen storage disease type II
     Dosage: 1700 MG, QOW
     Route: 042
     Dates: start: 20220310
  2. VITAMIN C [Concomitant]
     Active Substance: ASCORBIC ACID
  3. VAGIFEM [Concomitant]
     Active Substance: ESTRADIOL
  4. SERTRALINE HYDROCHLORIDE [Concomitant]
     Active Substance: SERTRALINE HYDROCHLORIDE
  5. MOTRIN IB [Concomitant]
     Active Substance: IBUPROFEN
  6. TYLENOL EXTRA STRENGTH [Concomitant]
     Active Substance: ACETAMINOPHEN
  7. LOSARTAN POTASSIUM [Concomitant]
     Active Substance: LOSARTAN POTASSIUM
  8. LYRICA [Concomitant]
     Active Substance: PREGABALIN
  9. BACLOFEN [Concomitant]
     Active Substance: BACLOFEN
  10. ALPHA LIPOIC ACID [Concomitant]
     Active Substance: .ALPHA.-LIPOIC ACID
  11. ALEVE [Concomitant]
     Active Substance: NAPROXEN SODIUM

REACTIONS (1)
  - Illness [Unknown]
